FAERS Safety Report 22202255 (Version 1)
Quarter: 2023Q2

REPORT INFORMATION
  Report Type: Spontaneous
  Country: AR (occurrence: AR)
  Receive Date: 20230412
  Receipt Date: 20230412
  Transmission Date: 20230722
  Serious: Yes (Hospitalization, Other)
  Sender: FDA-Public Use
  Company Number: AR-BAYER-2023A048279

PATIENT
  Age: 53 Year
  Sex: Male

DRUGS (1)
  1. ULTRAVIST [Suspect]
     Active Substance: IOPROMIDE
     Dosage: 80 ML, ONCE
     Dates: start: 20230404, end: 20230404

REACTIONS (7)
  - Rash papular [Recovered/Resolved]
  - Dyspnoea [Recovered/Resolved]
  - Rash [Recovered/Resolved]
  - Eyelid oedema [Recovered/Resolved]
  - Stridor [Recovered/Resolved]
  - Wheezing [Recovering/Resolving]
  - Nasal congestion [Not Recovered/Not Resolved]

NARRATIVE: CASE EVENT DATE: 20230404
